FAERS Safety Report 18860401 (Version 1)
Quarter: 2021Q1

REPORT INFORMATION
  Report Type: Spontaneous
  Country: CN (occurrence: CN)
  Receive Date: 20210208
  Receipt Date: 20210208
  Transmission Date: 20210420
  Serious: Yes (Hospitalization, Other)
  Sender: FDA-Public Use
  Company Number: CN-009507513-2102CHN001644

PATIENT
  Age: 60 Year
  Sex: Male
  Weight: 67 kg

DRUGS (7)
  1. PIOGLITAZONE HYDROCHLORIDE. [Interacting]
     Active Substance: PIOGLITAZONE HYDROCHLORIDE
     Indication: TYPE 2 DIABETES MELLITUS
     Dosage: 1 DF, QD
     Route: 048
     Dates: start: 20200620, end: 20200626
  2. PERINDOPRIL [Concomitant]
     Active Substance: PERINDOPRIL
  3. ASPIRIN. [Concomitant]
     Active Substance: ASPIRIN
  4. TICAGRELOR. [Concomitant]
     Active Substance: TICAGRELOR
  5. REPAGLINIDE. [Interacting]
     Active Substance: REPAGLINIDE
     Indication: TYPE 2 DIABETES MELLITUS
     Dosage: 1 DF, BID
     Route: 048
     Dates: start: 20200620, end: 20200626
  6. SITAGLIPTIN PHOSPHATE [Suspect]
     Active Substance: SITAGLIPTIN PHOSPHATE
     Indication: TYPE 2 DIABETES MELLITUS
     Dosage: 1 DF, QD
     Route: 048
     Dates: start: 20200620, end: 20200626
  7. GLUCOBAY [Interacting]
     Active Substance: ACARBOSE
     Indication: TYPE 2 DIABETES MELLITUS
     Dosage: 1 DF, BID
     Route: 048
     Dates: start: 20200620, end: 20200626

REACTIONS (9)
  - Hypokalaemia [Unknown]
  - Muscular weakness [Recovered/Resolved]
  - Hypoglycaemia [Recovered/Resolved]
  - Enteritis [Unknown]
  - Cerebrovascular disorder [Unknown]
  - Dizziness [Recovered/Resolved]
  - Drug interaction [Unknown]
  - Dysarthria [Recovered/Resolved]
  - Diarrhoea [Unknown]

NARRATIVE: CASE EVENT DATE: 20200624
